FAERS Safety Report 7653344-4 (Version None)
Quarter: 2011Q3

REPORT INFORMATION
  Report Type: 
  Country: None (occurrence: None)
  Receive Date: 20110803
  Receipt Date: 20110729
  Transmission Date: 20111222
  Serious: Yes (Other)
  Sender: FDA-Public Use
  Company Number: JP-B.I. PHARMACEUTICALS,INC./RIDGEFIELD-2011-BP-15195NB

PATIENT
  Sex: Male
  Weight: 45.9 kg

DRUGS (4)
  1. LANIRAPID [Concomitant]
     Indication: ATRIAL FIBRILLATION
     Dosage: 600 MG
     Route: 048
     Dates: start: 20110402
  2. PRADAXA [Suspect]
     Indication: ATRIAL FIBRILLATION
     Dosage: 220 MG
     Route: 048
     Dates: start: 20110411, end: 20110603
  3. VALPROATE SODIUM [Suspect]
     Indication: CONVULSION
     Dosage: 600 MG
     Route: 048
     Dates: start: 20110401, end: 20110603
  4. VERAPAMIL HCL [Concomitant]
     Indication: TACHYCARDIA
     Dosage: 600 MG
     Route: 048
     Dates: start: 20110406

REACTIONS (2)
  - INTERNATIONAL NORMALISED RATIO INCREASED [None]
  - HEPATIC FUNCTION ABNORMAL [None]
